FAERS Safety Report 7498485-X (Version None)
Quarter: 2011Q2

REPORT INFORMATION
  Report Type: 
  Country: None (occurrence: None)
  Receive Date: 20110516
  Receipt Date: 20110510
  Transmission Date: 20111010
  Serious: Yes (Life-Threatening)
  Sender: FDA-Public Use
  Company Number: 2011SP021163

PATIENT
  Age: 35 Year
  Sex: Female
  Weight: 169 kg

DRUGS (3)
  1. NUVARING [Suspect]
     Indication: PRODUCT USED FOR UNKNOWN INDICATION
     Dosage: 1 DF;QM;VAG
     Route: 067
  2. ZOLOFT [Concomitant]
  3. ESCITALOPRAM [Concomitant]

REACTIONS (4)
  - CONDITION AGGRAVATED [None]
  - MENTAL DISORDER [None]
  - DEPRESSION [None]
  - SUICIDAL IDEATION [None]
